FAERS Safety Report 12258596 (Version 2)
Quarter: 2020Q1

REPORT INFORMATION
  Report Type: Spontaneous
  Country: US (occurrence: US)
  Receive Date: 20160412
  Receipt Date: 20200124
  Transmission Date: 20200409
  Serious: No
  Sender: FDA-Public Use
  Company Number: US-SA-2015SA051710

PATIENT
  Sex: Male

DRUGS (1)
  1. ALLEGRA ALLERGY [Suspect]
     Active Substance: FEXOFENADINE HYDROCHLORIDE
     Indication: HYPERSENSITIVITY
     Dosage: 1 DF, QD, (180, UNIT UNKNNOWN)
     Route: 065

REACTIONS (4)
  - Rhinorrhoea [Unknown]
  - Therapeutic product effect decreased [Unknown]
  - Sneezing [Unknown]
  - Lacrimation increased [Unknown]
